FAERS Safety Report 17157442 (Version 1)
Quarter: 2019Q4

REPORT INFORMATION
  Report Type: Spontaneous
  Country: SE (occurrence: SE)
  Receive Date: 20191216
  Receipt Date: 20191216
  Transmission Date: 20200122
  Serious: Yes (Death)
  Sender: FDA-Public Use
  Company Number: SE-TEVA-2019-SE-1151292

PATIENT
  Age: 65 Year
  Sex: Male

DRUGS (8)
  1. OXALIPLATIN. [Suspect]
     Active Substance: OXALIPLATIN
     Indication: RECTAL CANCER
  2. FLUOROURACIL. [Suspect]
     Active Substance: FLUOROURACIL
     Indication: RECTAL CANCER METASTATIC
     Dosage: A TOTAL OF THREE CURES?CURE THREE 810MG
     Route: 042
     Dates: start: 20191007
  3. ENALAPRIL [Concomitant]
     Active Substance: ENALAPRIL
     Route: 065
  4. OXALIPLATIN. [Suspect]
     Active Substance: OXALIPLATIN
     Indication: METASTASES TO LUNG
  5. FOLACIN [Concomitant]
     Route: 065
  6. OXALIPLATIN. [Suspect]
     Active Substance: OXALIPLATIN
     Indication: RECTAL CANCER METASTATIC
     Dosage: A TOTAL OF THREE CURES?CURE THREE 173MG
     Route: 042
     Dates: start: 20191007
  7. ALVEDON [Concomitant]
     Active Substance: ACETAMINOPHEN
     Route: 065
  8. PREDNISOLONE. [Concomitant]
     Active Substance: PREDNISOLONE
     Route: 065

REACTIONS (1)
  - Cardiac arrest [Fatal]

NARRATIVE: CASE EVENT DATE: 201911
